FAERS Safety Report 8559978 (Version 2)
Quarter: 2012Q4

REPORT INFORMATION
  Report Type: 
  Country: ES (occurrence: ES)
  Receive Date: 20120514
  Receipt Date: 20121022
  Transmission Date: 20130627
  Serious: No
  Sender: FDA-Public Use
  Company Number: ES-SANOFI-AVENTIS-2012SA032550

PATIENT
  Age: 21 Year
  Sex: Female
  Weight: 57 kg

DRUGS (5)
  1. ARAVA [Suspect]
     Indication: JUVENILE IDIOPATHIC ARTHRITIS
     Route: 048
     Dates: start: 20060324, end: 20120503
  2. NAPROXEN [Suspect]
     Indication: JUVENILE IDIOPATHIC ARTHRITIS
     Route: 048
     Dates: start: 20060630, end: 20120503
  3. CITALOPRAM [Suspect]
     Indication: DEPRESSION
     Route: 048
     Dates: start: 20090101, end: 20120503
  4. DIAZEPAM [Suspect]
     Indication: DEPRESSION
     Route: 048
     Dates: start: 20090101, end: 20120503
  5. ETHINYL ESTRADIOL W/NORGESTREL [Concomitant]
     Route: 048

REACTIONS (1)
  - Exposure during pregnancy [Unknown]
